FAERS Safety Report 19645620 (Version 1)
Quarter: 2021Q3

REPORT INFORMATION
  Report Type: Spontaneous
  Country: NL (occurrence: NL)
  Receive Date: 20210802
  Receipt Date: 20210802
  Transmission Date: 20211014
  Serious: Yes (Other)
  Sender: FDA-Public Use
  Company Number: NL-NOVOPROD-831636

PATIENT
  Sex: Female

DRUGS (2)
  1. INSULIN ASPART SANOFI [Suspect]
     Active Substance: INSULIN ASPART
     Indication: DIABETES MELLITUS
     Dosage: INJECTION LIQUID, 100 UNITS/ML (UNITS PER MILLILITER)
     Route: 065
     Dates: start: 20210702
  2. NOVORAPID [Suspect]
     Active Substance: INSULIN ASPART
     Indication: PRODUCT USED FOR UNKNOWN INDICATION
     Dosage: UNK
     Route: 065

REACTIONS (7)
  - Urine odour abnormal [Recovered/Resolved]
  - Dry mouth [Recovered/Resolved]
  - Blood glucose fluctuation [Recovering/Resolving]
  - Logorrhoea [Recovered/Resolved]
  - Mydriasis [Recovered/Resolved]
  - Suicidal ideation [Recovered/Resolved]
  - Therapeutic response unexpected [Unknown]
